FAERS Safety Report 8478572 (Version 4)
Quarter: 2015Q1

REPORT INFORMATION
  Report Type: Report from Study
  Country: US (occurrence: US)
  Receive Date: 20120327
  Receipt Date: 20150317
  Transmission Date: 20150721
  Serious: Yes (Death)
  Sender: FDA-Public Use
  Company Number: US-ROCHE-1052726

PATIENT
  Sex: Female

DRUGS (13)
  1. LUCENTIS [Suspect]
     Active Substance: RANIBIZUMAB
     Indication: DIABETIC RETINAL OEDEMA
     Route: 050
  2. EPINEPHRINE. [Concomitant]
     Active Substance: EPINEPHRINE
  3. LUCENTIS [Suspect]
     Active Substance: RANIBIZUMAB
     Route: 050
     Dates: start: 20100820
  4. LEVOTHYROXINE [Concomitant]
     Active Substance: LEVOTHYROXINE
  5. LIDOCAINE. [Concomitant]
     Active Substance: LIDOCAINE
     Route: 065
  6. MAG OXIDE [Concomitant]
     Active Substance: MAGNESIUM OXIDE
  7. NITRENDIPINE [Concomitant]
     Active Substance: NITRENDIPINE
  8. LUCENTIS [Suspect]
     Active Substance: RANIBIZUMAB
     Route: 050
     Dates: start: 20100618
  9. DIOVAN [Concomitant]
     Active Substance: VALSARTAN
  10. LUCENTIS [Suspect]
     Active Substance: RANIBIZUMAB
     Route: 050
     Dates: start: 20111025
  11. FUROSEMIDE. [Concomitant]
     Active Substance: FUROSEMIDE
  12. AMIODARONE [Concomitant]
     Active Substance: AMIODARONE
  13. NIFEDICAL [Concomitant]

REACTIONS (1)
  - Death [Fatal]
